FAERS Safety Report 24125046 (Version 1)
Quarter: 2024Q3

REPORT INFORMATION
  Report Type: Spontaneous
  Country: IT (occurrence: IT)
  Receive Date: 20240723
  Receipt Date: 20240723
  Transmission Date: 20241016
  Serious: Yes (Other)
  Sender: SANOFI AVENTIS
  Company Number: None

PATIENT
  Age: 57 Year
  Sex: Male
  Weight: 70 kg

DRUGS (3)
  1. ZALTRAP [Suspect]
     Active Substance: ZIV-AFLIBERCEPT
     Indication: Adenocarcinoma of colon
     Dosage: 280 MG, Q15D (ZALTRAP 25 MG/ML CONCENTRATE FOR INFUSION SOLUTION. EACH 4 ML VIAL OF CONCENTRATE CONT
     Route: 042
     Dates: start: 20240703, end: 20240703
  2. FLUOROURACIL [Concomitant]
     Active Substance: FLUOROURACIL
     Indication: Adenocarcinoma of colon
     Dosage: 540 MG
     Route: 042
     Dates: start: 20240703, end: 20240703
  3. IRINOTECAN HYDROCHLORIDE [Concomitant]
     Active Substance: IRINOTECAN HYDROCHLORIDE
     Indication: Adenocarcinoma of colon
     Dosage: 210 MG (210 MG CONCENTRATED INFUSION SOLUTION, 20 MG/ML)
     Route: 042
     Dates: start: 20240703, end: 20240703

REACTIONS (2)
  - Choking sensation [Recovered/Resolved]
  - Oropharyngeal pain [Recovered/Resolved]

NARRATIVE: CASE EVENT DATE: 20240703
